FAERS Safety Report 10661595 (Version 2)
Quarter: 2015Q1

REPORT INFORMATION
  Report Type: Spontaneous
  Country: IN (occurrence: IN)
  Receive Date: 20141218
  Receipt Date: 20150202
  Transmission Date: 20150720
  Serious: Yes (Other)
  Sender: FDA-Public Use
  Company Number: IN-UCBSA-2014021957

PATIENT
  Age: 46 Year
  Sex: Female

DRUGS (4)
  1. KEPPRA [Suspect]
     Active Substance: LEVETIRACETAM
     Indication: SEIZURE
     Dosage: LOADING DOSE OF 20  MG PER KG
  2. KEPPRA [Suspect]
     Active Substance: LEVETIRACETAM
     Dosage: 500 MG, 3X/DAY (TID); 8TH HOURLY
  3. ACYCLOVIR. [Concomitant]
     Active Substance: ACYCLOVIR
     Indication: ENCEPHALITIS
     Dosage: UNKNOWN DOSE
  4. CEFTRIAXONE. [Suspect]
     Active Substance: CEFTRIAXONE
     Indication: ENCEPHALITIS
     Dosage: UNKNOWN DOSE
     Route: 042

REACTIONS (2)
  - Encephalopathy [Recovered/Resolved]
  - Inappropriate schedule of drug administration [Unknown]
